FAERS Safety Report 17977181 (Version 1)
Quarter: 2020Q3

REPORT INFORMATION
  Report Type: Report from Study
  Country: US (occurrence: US)
  Receive Date: 20200703
  Receipt Date: 20200703
  Transmission Date: 20201103
  Serious: Yes (Hospitalization, Other)
  Sender: FDA-Public Use
  Company Number: US-GILEAD-2020-0478734

PATIENT
  Sex: Male

DRUGS (2)
  1. REMODULIN [Concomitant]
     Active Substance: TREPROSTINIL
     Dates: start: 20200102
  2. AMBRISENTAN [Suspect]
     Active Substance: AMBRISENTAN
     Indication: PULMONARY ARTERIAL HYPERTENSION
     Dosage: 10 MG, QD
     Route: 065
     Dates: start: 20200102

REACTIONS (1)
  - Seizure [Not Recovered/Not Resolved]
